FAERS Safety Report 8447265-7 (Version None)
Quarter: 2012Q2

REPORT INFORMATION
  Report Type: 
  Country: None (occurrence: None)
  Receive Date: 20120619
  Receipt Date: 20120611
  Transmission Date: 20120825
  Serious: Yes (Other)
  Sender: FDA-Public Use
  Company Number: PHHY2011US20567

PATIENT
  Sex: Female
  Weight: 77.56 kg

DRUGS (6)
  1. EXJADE [Interacting]
     Dosage: 500 MG, BID
     Route: 048
     Dates: start: 20110824
  2. CYCLOSPORINE [Interacting]
     Dosage: 125 MG, BID
     Route: 048
     Dates: start: 20110524
  3. EXJADE [Suspect]
     Indication: IRON OVERLOAD
     Dosage: 250 MG, BID
     Route: 048
     Dates: start: 20110216, end: 20110322
  4. CYCLOSPORINE [Interacting]
     Dosage: 150 MG, BID
     Route: 048
     Dates: start: 20110404
  5. CYCLOSPORINE [Interacting]
     Dosage: 100 MG, BID
     Route: 048
     Dates: start: 20110613, end: 20110811
  6. CYCLOSPORINE [Interacting]
     Indication: IMMUNOSUPPRESSION
     Dosage: 175 MG, BID
     Route: 048
     Dates: start: 20100601, end: 20110323

REACTIONS (14)
  - COUGH [None]
  - MATERNAL EXPOSURE DURING PREGNANCY [None]
  - RETCHING [None]
  - DIARRHOEA [None]
  - ARTHRITIS [None]
  - ABDOMINAL PAIN [None]
  - THROAT IRRITATION [None]
  - PARAESTHESIA [None]
  - DRUG INTERACTION [None]
  - TOXICITY TO VARIOUS AGENTS [None]
  - NAUSEA [None]
  - HEADACHE [None]
  - MALAISE [None]
  - FATIGUE [None]
